FAERS Safety Report 25543046 (Version 2)
Quarter: 2025Q3

REPORT INFORMATION
  Report Type: Report from Study
  Country: GB (occurrence: GB)
  Receive Date: 20250711
  Receipt Date: 20250908
  Transmission Date: 20251021
  Serious: Yes (Life-Threatening, Hospitalization, Other)
  Sender: NOVARTIS
  Company Number: GB-002147023-NVSC2025GB109508

PATIENT
  Age: 36 Year
  Sex: Male

DRUGS (1)
  1. COSENTYX [Suspect]
     Active Substance: SECUKINUMAB
     Indication: Psoriatic arthropathy
     Dosage: 300 MG, QMO
     Route: 065
     Dates: start: 20190322

REACTIONS (7)
  - Pelvic fracture [Recovered/Resolved]
  - Jaw fracture [Recovered/Resolved]
  - Upper limb fracture [Recovered/Resolved]
  - Fall [Recovered/Resolved]
  - Ankle fracture [Recovered/Resolved]
  - Rib fracture [Recovered/Resolved]
  - Craniofacial fracture [Recovered/Resolved]

NARRATIVE: CASE EVENT DATE: 20250514
